FAERS Safety Report 9414213 (Version 2)
Quarter: 2013Q3

REPORT INFORMATION
  Report Type: Spontaneous
  Country: US (occurrence: US)
  Receive Date: 20130723
  Receipt Date: 20130813
  Transmission Date: 20140515
  Serious: No
  Sender: FDA-Public Use
  Company Number: US-B.I. PHARMACEUTICALS,INC./RIDGEFIELD-2013-BI-21200BP

PATIENT
  Sex: Male

DRUGS (11)
  1. COMBIVENT [Suspect]
     Indication: CHRONIC OBSTRUCTIVE PULMONARY DISEASE
     Dosage: STRENGTH: 20 MCG / 100 MCG;
     Route: 055
     Dates: start: 20130628
  2. FUROSEMIDE [Concomitant]
     Dosage: 40 MG
     Route: 048
  3. PREDNISONE [Concomitant]
     Dosage: 20 MG
     Route: 048
  4. COMBIVENT INHALATION AEROSOL [Concomitant]
     Route: 055
     Dates: end: 20130627
  5. RAMIPRIL [Concomitant]
     Dosage: 10 MG
     Route: 048
  6. DILTIAZEM [Concomitant]
     Dosage: 60 MG
     Route: 048
  7. AMLODIPINE [Concomitant]
     Dosage: 5 MG
     Route: 048
  8. MONTELUKAST [Concomitant]
     Route: 048
  9. PIOGLITAZONE [Concomitant]
     Route: 048
  10. PANTOPRAZOLE [Concomitant]
     Dosage: STRENGTH: 40 MG; DAILY DOSE: 40 MG
     Route: 048
  11. ASPIRIN [Concomitant]
     Dosage: STRENGTH: 81 MG; DAILY DOSE: 81 MG
     Route: 048

REACTIONS (2)
  - Drug ineffective [Not Recovered/Not Resolved]
  - Drug prescribing error [Not Recovered/Not Resolved]
